FAERS Safety Report 16950480 (Version 1)
Quarter: 2019Q4

REPORT INFORMATION
  Report Type: Report from Study
  Country: EG (occurrence: EG)
  Receive Date: 20191023
  Receipt Date: 20191023
  Transmission Date: 20200122
  Serious: Yes (Other)
  Sender: FDA-Public Use
  Company Number: NVSC2019EG011527

PATIENT
  Age: 32 Year
  Sex: Male

DRUGS (1)
  1. TASIGNA [Suspect]
     Active Substance: NILOTINIB
     Indication: CHRONIC MYELOID LEUKAEMIA
     Dosage: 800 MG, QD
     Route: 048
     Dates: start: 201806, end: 201905

REACTIONS (4)
  - Asthenia [Recovering/Resolving]
  - Hepatic cirrhosis [Recovering/Resolving]
  - Jaundice [Recovering/Resolving]
  - Fatigue [Recovering/Resolving]
